FAERS Safety Report 9515361 (Version 2)
Quarter: 2013Q3

REPORT INFORMATION
  Report Type: Spontaneous
  Country: JP (occurrence: JP)
  Receive Date: 20130911
  Receipt Date: 20130916
  Transmission Date: 20140515
  Serious: Yes (Other)
  Sender: FDA-Public Use
  Company Number: JP-ASTRAZENECA-2013SE67994

PATIENT
  Age: 79 Year
  Sex: Male

DRUGS (5)
  1. SEROQUEL [Suspect]
     Route: 048
  2. MANY DRUGS [Concomitant]
  3. CABASER [Concomitant]
  4. MENESIT [Concomitant]
  5. MAGMITT [Concomitant]

REACTIONS (3)
  - Decubitus ulcer [Unknown]
  - Blood creatine phosphokinase increased [Unknown]
  - Blood urea increased [Unknown]
